FAERS Safety Report 18938248 (Version 1)
Quarter: 2021Q1

REPORT INFORMATION
  Report Type: Not Available
  Country: US (occurrence: US)
  Receive Date: 20210224
  Receipt Date: 20210224
  Transmission Date: 20210420
  Serious: Yes (Hospitalization)
  Sender: FDA-Public Use
  Company Number: US-NEUROCRINE BIOSCIENCES INC.-2021NBI00700

PATIENT
  Age: 48 Year
  Sex: Male

DRUGS (7)
  1. LOSARTAN. [Concomitant]
     Active Substance: LOSARTAN
  2. DULOXETINE. [Concomitant]
     Active Substance: DULOXETINE
  3. INGREZZA [Suspect]
     Active Substance: VALBENAZINE
     Indication: TARDIVE DYSKINESIA
     Route: 048
     Dates: start: 20191226
  4. RISPERIDONE. [Concomitant]
     Active Substance: RISPERIDONE
  5. CARTIA [Concomitant]
  6. MVI [Concomitant]
     Active Substance: VITAMINS
  7. CHLORPROMAZINE. [Concomitant]
     Active Substance: CHLORPROMAZINE

REACTIONS (2)
  - Hip fracture [Recovered/Resolved]
  - Fall [Recovered/Resolved]

NARRATIVE: CASE EVENT DATE: 20210209
